FAERS Safety Report 8593496-5 (Version None)
Quarter: 2012Q3

REPORT INFORMATION
  Report Type: 
  Country: None (occurrence: None)
  Receive Date: 20120814
  Receipt Date: 20120706
  Transmission Date: 20120928
  Serious: No
  Sender: FDA-Public Use
  Company Number: US-ASTRAZENECA-2012SE46551

PATIENT
  Age: 56 Year
  Sex: Female

DRUGS (4)
  1. PRILOSEC [Suspect]
     Route: 048
  2. NEXIUM [Suspect]
     Indication: GASTROOESOPHAGEAL REFLUX DISEASE
     Dosage: 30 MG
     Route: 048
  3. NEXIUM [Suspect]
     Indication: DYSPEPSIA
     Dosage: 30 MG
     Route: 048
  4. CANCER PILLS [Concomitant]
     Indication: NEOPLASM MALIGNANT
     Dosage: 2 PILLS QD

REACTIONS (10)
  - OFF LABEL USE [None]
  - IMMUNE SYSTEM DISORDER [None]
  - REGURGITATION [None]
  - NASOPHARYNGITIS [None]
  - MALAISE [None]
  - OROPHARYNGEAL PAIN [None]
  - CHOKING [None]
  - DRUG INEFFECTIVE [None]
  - LUNG DISORDER [None]
  - INTENTIONAL DRUG MISUSE [None]
